FAERS Safety Report 6137576-2 (Version None)
Quarter: 2009Q1

REPORT INFORMATION
  Report Type: 
  Country: None (occurrence: None)
  Receive Date: 20090327
  Receipt Date: 20090327
  Transmission Date: 20090719
  Serious: Yes (Life-Threatening, Hospitalization)
  Sender: FDA-Public Use
  Company Number: None

PATIENT
  Sex: Male

DRUGS (2)
  1. RISPERIDONE [Suspect]
     Indication: SCHIZOPHRENIA
     Dosage: 4X DAY 2 MG
     Dates: start: 20090114, end: 20090123
  2. CLOZAPINE [Suspect]
     Dosage: 3X DAY 2 MG
     Dates: start: 20090114, end: 20090121

REACTIONS (3)
  - ANGINA PECTORIS [None]
  - CARDIAC FAILURE [None]
  - SUDDEN DEATH [None]
